FAERS Safety Report 5107424-8 (Version None)
Quarter: 2006Q3

REPORT INFORMATION
  Report Type: 
  Country: None (occurrence: None)
  Receive Date: 20060731
  Receipt Date: 20060403
  Transmission Date: 20061208
  Serious: No
  Sender: FDA-Public Use
  Company Number: 2006PV011377

PATIENT
  Age: 50 Year
  Sex: Female
  Weight: 181.4388 kg

DRUGS (6)
  1. BYETTA [Suspect]
     Indication: DIABETES MELLITUS NON-INSULIN-DEPENDENT
     Dosage: SEE IMAGE
     Route: 058
     Dates: start: 20060101, end: 20060201
  2. BYETTA [Suspect]
     Indication: DIABETES MELLITUS NON-INSULIN-DEPENDENT
     Dosage: SEE IMAGE
     Route: 058
     Dates: start: 20060301
  3. VICODIN [Suspect]
     Indication: PROCEDURAL PAIN
     Dosage: QD
     Dates: start: 20060224, end: 20060226
  4. GLUCOPHAGE [Concomitant]
  5. GLIPIZIDE [Concomitant]
  6. LANTUS [Concomitant]

REACTIONS (11)
  - BLOOD GLUCOSE DECREASED [None]
  - BLOOD GLUCOSE INCREASED [None]
  - DYSPEPSIA [None]
  - HYPERHIDROSIS [None]
  - LIPOMA [None]
  - NAUSEA [None]
  - POSTOPERATIVE WOUND COMPLICATION [None]
  - STRESS [None]
  - THROAT TIGHTNESS [None]
  - TREMOR [None]
  - WEIGHT DECREASED [None]
